FAERS Safety Report 19500335 (Version 1)
Quarter: 2021Q3

REPORT INFORMATION
  Report Type: Spontaneous
  Country: AU (occurrence: AU)
  Receive Date: 20210706
  Receipt Date: 20210706
  Transmission Date: 20211014
  Serious: Yes (Other)
  Sender: FDA-Public Use
  Company Number: AU-SA-2021SA215097

PATIENT
  Age: 43 Year
  Sex: Female

DRUGS (14)
  1. LAMOTRIGINE. [Suspect]
     Active Substance: LAMOTRIGINE
     Dosage: 75MG
  2. CHLORPROMAZINE. [Suspect]
     Active Substance: CHLORPROMAZINE
  3. FEXOFENADINE HYDROCHLORIDE. [Suspect]
     Active Substance: FEXOFENADINE HYDROCHLORIDE
     Dosage: 180 MG, QD
  4. CLONIDINE. [Suspect]
     Active Substance: CLONIDINE
     Dosage: UNK
  5. PROMETHAZINE [Suspect]
     Active Substance: PROMETHAZINE HYDROCHLORIDE
     Dosage: 10MG
  6. RIZATRIPTAN. [Suspect]
     Active Substance: RIZATRIPTAN
     Dosage: 10 MG, PRN
  7. DESVENLAFAXINE SUCCINATE. [Suspect]
     Active Substance: DESVENLAFAXINE SUCCINATE
     Dosage: 50 MG, QD
  8. TOPIRAMATE. [Suspect]
     Active Substance: TOPIRAMATE
     Dosage: 100MG
  9. KETAMINE [Suspect]
     Active Substance: KETAMINE
  10. CANDESARTAN. [Suspect]
     Active Substance: CANDESARTAN
     Dosage: UNK
  11. PREDNISOLONE. [Suspect]
     Active Substance: PREDNISOLONE
     Dosage: UNK
  12. AMITRIPTYLINE HYDROCHLORIDE. [Suspect]
     Active Substance: AMITRIPTYLINE HYDROCHLORIDE
  13. AIMOVIG [Suspect]
     Active Substance: ERENUMAB-AOOE
     Dosage: 70 MG, Q4W
  14. BOTOX [Suspect]
     Active Substance: ONABOTULINUMTOXINA

REACTIONS (8)
  - Dizziness [Unknown]
  - Quality of life decreased [Unknown]
  - Mental impairment [Unknown]
  - Migraine [Unknown]
  - Tinnitus [Unknown]
  - Nausea [Unknown]
  - Somnolence [Unknown]
  - Photophobia [Unknown]
